FAERS Safety Report 8499668-2 (Version None)
Quarter: 2012Q2

REPORT INFORMATION
  Report Type: 
  Country: None (occurrence: None)
  Receive Date: 20120629
  Receipt Date: 20120620
  Transmission Date: 20120825
  Serious: Yes (Hospitalization, Disabling)
  Sender: FDA-Public Use
  Company Number: AUR-APL-2012-02702

PATIENT
  Age: 20 Year
  Sex: Male
  Weight: 73 kg

DRUGS (8)
  1. ZIDOVUDINE [Suspect]
     Indication: HIV INFECTION
     Dosage: 500 MG (250 MG, 2 IN 1 D), ORAL
     Route: 048
     Dates: start: 20120314, end: 20120406
  2. PROBENECID [Concomitant]
  3. MIRTAZAPINE [Concomitant]
  4. CIDOFOVIR [Suspect]
     Indication: JC VIRUS INFECTION
     Dosage: 52.8571 MG (370 MG, 1 IN 1 WK), INTRAVENOUS
     Route: 042
     Dates: start: 20120328, end: 20120423
  5. CIDOFOVIR [Suspect]
     Indication: PROGRESSIVE MULTIFOCAL LEUKOENCEPHALOPATHY
     Dosage: 52.8571 MG (370 MG, 1 IN 1 WK), INTRAVENOUS
     Route: 042
     Dates: start: 20120328, end: 20120423
  6. KALETRA [Suspect]
     Indication: HIV INFECTION
     Dosage: 4 DOSAGE FORMS (2 DOSAGE FORMS, 2 IN 1 D), ORAL
     Route: 048
     Dates: start: 20120314
  7. SAQUINAVIR (SAQUINAVIR) [Concomitant]
  8. TENOFOVIR (TENOFOVIR) [Concomitant]

REACTIONS (2)
  - NEUTROPENIA [None]
  - ILL-DEFINED DISORDER [None]
